FAERS Safety Report 6121241-1 (Version None)
Quarter: 2009Q1

REPORT INFORMATION
  Report Type: 
  Country: None (occurrence: None)
  Receive Date: 20090313
  Receipt Date: 20090302
  Transmission Date: 20090719
  Serious: Yes (Hospitalization)
  Sender: FDA-Public Use
  Company Number: IPS_01480_2009

PATIENT
  Sex: Male

DRUGS (1)
  1. APO-GO (APO-GO - APOMORPHINE HYDROCHLORIDE) (NOT SPECIFIED) [Suspect]
     Indication: DRUG USE FOR UNKNOWN INDICATION
     Dosage: (4.2 ML PER HOUR FOR 17 WEEKS 0 DAYS [FROM 07:30 H. TO 22:00 H. DAILY] SUBCUTANEOUS)
     Route: 058
     Dates: start: 20081101, end: 20090227

REACTIONS (4)
  - CONFUSIONAL STATE [None]
  - INDURATION [None]
  - LOSS OF CONSCIOUSNESS [None]
  - NODULE [None]
